FAERS Safety Report 5730147-9 (Version None)
Quarter: 2008Q2

REPORT INFORMATION
  Report Type: 
  Country: None (occurrence: None)
  Receive Date: 20080505
  Receipt Date: 20080505
  Transmission Date: 20081010
  Serious: Yes (Hospitalization)
  Sender: FDA-Public Use
  Company Number: None

PATIENT
  Age: 49 Year
  Sex: Female
  Weight: 102 kg

DRUGS (17)
  1. CCI-779 (TEMSIROLIMUS) [Suspect]
     Indication: MULTIPLE MYELOMA
     Dosage: 10 MG WEEKLY (5 WKS) IV
     Route: 042
     Dates: start: 20080314, end: 20080425
  2. VELCADE [Suspect]
     Indication: MULTIPLE MYELOMA
     Dosage: 1.0 MG/M2 WKLY (4/5 WK)
     Dates: start: 20080314, end: 20080425
  3. ACYCOLIVER [Concomitant]
  4. COLACE [Concomitant]
  5. COMPAZINE [Concomitant]
  6. ZOFRAN [Concomitant]
  7. CLARITIN [Concomitant]
  8. ZOMETA [Concomitant]
  9. PROZAC [Concomitant]
  10. PROTONIX [Concomitant]
  11. TRILISATE [Concomitant]
  12. DIALAUDID [Concomitant]
  13. OXYCONTIN [Concomitant]
  14. BENADRYL [Concomitant]
  15. ACETAMINOPHEN [Concomitant]
  16. NEURONTIN [Concomitant]
  17. REGLAN [Concomitant]

REACTIONS (2)
  - DISEASE PROGRESSION [None]
  - SPINAL CORD COMPRESSION [None]
